FAERS Safety Report 8037530-X (Version None)
Quarter: 2012Q1

REPORT INFORMATION
  Report Type: 
  Country: None (occurrence: None)
  Receive Date: 20120111
  Receipt Date: 20120103
  Transmission Date: 20120608
  Serious: Yes (Hospitalization, Other)
  Sender: FDA-Public Use
  Company Number: US-BAYER-2011-063271

PATIENT
  Age: 33 Year
  Sex: Female
  Weight: 81.633 kg

DRUGS (6)
  1. METHYLPREDNISOLONE [Concomitant]
  2. BALACET [Concomitant]
  3. MULTI-VITAMINS [Concomitant]
  4. TOPAMAX [Concomitant]
     Indication: HEADACHE
  5. YAZ [Suspect]
     Indication: CONTRACEPTION
     Dosage: UNK
     Route: 048
     Dates: start: 20081001, end: 20090801
  6. YAZ [Suspect]
     Indication: PREMENSTRUAL SYNDROME

REACTIONS (8)
  - ANXIETY [None]
  - PANCREATITIS [None]
  - GALLBLADDER DISORDER [None]
  - GENERAL PHYSICAL HEALTH DETERIORATION [None]
  - CHOLECYSTITIS CHRONIC [None]
  - EMOTIONAL DISTRESS [None]
  - INJURY [None]
  - ABDOMINAL PAIN [None]
